FAERS Safety Report 10226470 (Version 1)
Quarter: 2014Q2

REPORT INFORMATION
  Report Type: Spontaneous
  Country: US (occurrence: US)
  Receive Date: 20140609
  Receipt Date: 20140609
  Transmission Date: 20141212
  Serious: Yes (Other)
  Sender: FDA-Public Use
  Company Number: US-AMGEN-USASP2014008956

PATIENT
  Age: 65 Year
  Sex: Female

DRUGS (2)
  1. EPOGEN [Suspect]
     Indication: RENAL FAILURE CHRONIC
     Dosage: 30000 UNIT,  TWICE A MONTHS
     Route: 065
  2. EPOGEN [Suspect]

REACTIONS (2)
  - Cerebrovascular accident [Unknown]
  - Visual acuity reduced [Unknown]
